FAERS Safety Report 23129898 (Version 2)
Quarter: 2023Q4

REPORT INFORMATION
  Report Type: Spontaneous
  Country: AR (occurrence: AR)
  Receive Date: 20231031
  Receipt Date: 20231214
  Transmission Date: 20240110
  Serious: No
  Sender: FDA-Public Use
  Company Number: AR-PFIZER INC-PV202300166862

PATIENT
  Age: 13 Year
  Sex: Male

DRUGS (1)
  1. GENOTROPIN [Suspect]
     Active Substance: SOMATROPIN
     Indication: Short stature
     Dosage: 1.5 TO 2 MG 7 TIMES A WEEK
     Dates: start: 20171230

REACTIONS (3)
  - Device mechanical issue [Unknown]
  - Poor quality device used [Not Recovered/Not Resolved]
  - Injection site pain [Not Recovered/Not Resolved]
